FAERS Safety Report 6924367-5 (Version None)
Quarter: 2010Q3

REPORT INFORMATION
  Report Type: 
  Country: None (occurrence: None)
  Receive Date: 20100811
  Receipt Date: 20100811
  Transmission Date: 20110219
  Serious: Yes (Life-Threatening, Hospitalization)
  Sender: FDA-Public Use
  Company Number: None

PATIENT
  Sex: Female
  Weight: 68.0396 kg

DRUGS (8)
  1. FOSAMAX [Suspect]
     Indication: OSTEOPENIA
     Dosage: 70MG WEEKLY PO
     Route: 048
     Dates: start: 20080819, end: 20100801
  2. IBUPROFEN [Suspect]
     Indication: ARTHRITIS
     Dosage: 200MG 3 PO DAILY PO
     Route: 048
  3. THYROID TAB [Concomitant]
  4. AMBIEN CR [Concomitant]
  5. XANAX [Concomitant]
  6. TOPROL-XL [Concomitant]
  7. PRAVASTATIN [Concomitant]
  8. DARVOCET [Concomitant]

REACTIONS (3)
  - ANAEMIA [None]
  - GASTROINTESTINAL HAEMORRHAGE [None]
  - HYPOTENSION [None]
